FAERS Safety Report 25969788 (Version 2)
Quarter: 2025Q4

REPORT INFORMATION
  Report Type: Spontaneous
  Country: RU (occurrence: RU)
  Receive Date: 20251028
  Receipt Date: 20251107
  Transmission Date: 20260117
  Serious: Yes (Hospitalization, Other)
  Sender: CLINIGEN
  Company Number: RU-CLINIGEN-CLI2025000161

PATIENT

DRUGS (3)
  1. FOSCARNET SODIUM [Suspect]
     Active Substance: FOSCARNET SODIUM
     Indication: Cytomegalovirus infection
     Dosage: UNK
     Route: 065
     Dates: start: 20250814, end: 20250911
  2. GANCICLOVIR [Suspect]
     Active Substance: GANCICLOVIR
     Indication: Product used for unknown indication
     Route: 065
  3. MARIBAVIR [Suspect]
     Active Substance: MARIBAVIR
     Indication: Cytomegalovirus infection
     Route: 065

REACTIONS (8)
  - Toxicity to various agents [Unknown]
  - Respiratory failure [Unknown]
  - Blood creatinine increased [Unknown]
  - Nephropathy toxic [Unknown]
  - Cytopenia [Unknown]
  - Myelosuppression [Unknown]
  - Bone marrow failure [Unknown]
  - Cytomegalovirus infection [Unknown]
